FAERS Safety Report 7383251-6 (Version None)
Quarter: 2011Q1

REPORT INFORMATION
  Report Type: 
  Country: None (occurrence: None)
  Receive Date: 20110330
  Receipt Date: 20110315
  Transmission Date: 20110831
  Serious: Yes (Hospitalization)
  Sender: FDA-Public Use
  Company Number: PHHY2011FR22320

PATIENT
  Sex: Male

DRUGS (15)
  1. PREVISCAN [Concomitant]
  2. TAHOR [Concomitant]
  3. RIFADIN [Suspect]
     Dosage: UNK
     Route: 048
     Dates: start: 20101223, end: 20110207
  4. ATARAX [Concomitant]
     Dosage: UNK
     Dates: start: 20101223, end: 20110207
  5. TAREG [Suspect]
     Dosage: 80 MG, QD
     Route: 048
     Dates: start: 20101117
  6. RIFADIN [Suspect]
     Indication: INTERVERTEBRAL DISCITIS
     Dosage: 900 MG, BID
     Dates: start: 20101211, end: 20101220
  7. VANCOMYCIN [Concomitant]
     Indication: INTERVERTEBRAL DISCITIS
  8. KARDEGIC [Concomitant]
  9. OXYCONTIN [Concomitant]
  10. ATHYMIL [Concomitant]
  11. OXYNORM [Concomitant]
  12. TENORMIN [Concomitant]
  13. BACTRIM [Suspect]
     Dosage: 2 DF, BID
     Route: 048
     Dates: start: 20101217
  14. ESOMEPRAZOLE [Concomitant]
  15. XATRAL [Concomitant]

REACTIONS (9)
  - METABOLIC ACIDOSIS [None]
  - CYTOLYTIC HEPATITIS [None]
  - NAUSEA [None]
  - INFLAMMATION [None]
  - HYPERKALAEMIA [None]
  - GASTROINTESTINAL DISORDER [None]
  - VOMITING [None]
  - ANAEMIA FOLATE DEFICIENCY [None]
  - RENAL FAILURE ACUTE [None]
